FAERS Safety Report 4441613-0 (Version None)
Quarter: 2004Q3

REPORT INFORMATION
  Report Type: 
  Country: None (occurrence: None)
  Receive Date: 20040907
  Receipt Date: 20040901
  Transmission Date: 20050211
  Serious: Yes (Death, Life-Threatening, Hospitalization)
  Sender: FDA-Public Use
  Company Number: JP-JNJFOC-20040804445

PATIENT
  Sex: Female

DRUGS (24)
  1. LEUSTATIN [Suspect]
     Indication: LEUKAEMIA PLASMACYTIC
     Route: 041
  2. TOTAL BODY IRRADIATION [Suspect]
     Indication: LEUKAEMIA PLASMACYTIC
  3. CONCENTRATED HUMAN RED BLOOD CELLS [Concomitant]
     Route: 041
  4. GANCICLOVIR [Concomitant]
     Route: 041
  5. CEFOZOPRAN HYDROCHLORIDE [Concomitant]
     Indication: PNEUMONIA
     Route: 041
  6. PH 4 TREATED ACIDIC HUMAN NORMAL IMMUNOGLOBULIN [Concomitant]
     Indication: PNEUMONIA
     Route: 041
  7. DOPAMINE HCL [Concomitant]
     Indication: PROPHYLAXIS
     Route: 041
  8. FLUCONAZOLE [Concomitant]
     Indication: ANTIFUNGAL PROPHYLAXIS
     Route: 049
  9. TOSUFLOXACIN TOSILATE [Concomitant]
     Indication: ANTIFUNGAL PROPHYLAXIS
     Route: 049
  10. AMPHOTERICIN B [Concomitant]
     Indication: ANTIFUNGAL PROPHYLAXIS
     Route: 049
  11. SULFAMETHOXAZOLE + TRIMETHOPRIM [Concomitant]
     Route: 049
  12. SULFAMETHOXAZOLE + TRIMETHOPRIM [Concomitant]
     Route: 049
  13. URSODESOXYCHOLIC ACID [Concomitant]
     Indication: PROPHYLAXIS
     Route: 049
  14. ACYCLOVIR [Concomitant]
     Indication: ANTIVIRAL PROPHYLAXIS
     Route: 049
  15. VALPROATE SODIUM [Concomitant]
     Indication: PROPHYLAXIS
     Route: 049
  16. CARBAZOCHROME SODIUM SULFONATE [Concomitant]
     Indication: EPISTAXIS
     Route: 049
  17. ASCORBIC ACID CALCIUM PANTOTHENATE [Concomitant]
     Route: 049
  18. ASCORBIC ACID CALCIUM PANTOTHENATE [Concomitant]
     Indication: EPISTAXIS
     Route: 049
  19. PREDNISOLONE [Concomitant]
     Indication: LEUKAEMIA PLASMACYTIC
     Route: 049
  20. DALTEPARIN SODIUM [Concomitant]
     Indication: PROPHYLAXIS
     Route: 041
  21. BUSULFAN [Concomitant]
     Route: 049
  22. DEXAMETHASONE [Concomitant]
     Route: 041
  23. CONCENTRATED HUMAN BLOOD PLATELET [Concomitant]
     Route: 041
  24. FILGRASTIM [Concomitant]
     Route: 041

REACTIONS (13)
  - BLOOD BILIRUBIN INCREASED [None]
  - BLOOD PRESSURE DECREASED [None]
  - CENTRAL NERVOUS SYSTEM NEOPLASM [None]
  - CONVULSION [None]
  - DEPRESSED LEVEL OF CONSCIOUSNESS [None]
  - DISEASE PROGRESSION [None]
  - HAEMATEMESIS [None]
  - HYPERAMMONAEMIA [None]
  - LEUKAEMIA PLASMACYTIC [None]
  - NEOPLASM RECURRENCE [None]
  - OESOPHAGITIS [None]
  - PROTEIN TOTAL DECREASED [None]
  - RADIATION INJURY [None]
